FAERS Safety Report 21793126 (Version 1)
Quarter: 2022Q4

REPORT INFORMATION
  Report Type: Report from Study
  Country: US (occurrence: US)
  Receive Date: 20221229
  Receipt Date: 20221229
  Transmission Date: 20230112
  Serious: No
  Sender: FDA-Public Use
  Company Number: US-ABBVIE-4206415

PATIENT
  Sex: Female

DRUGS (3)
  1. SKYRIZI [Suspect]
     Active Substance: RISANKIZUMAB-RZAA
     Indication: Psoriasis
     Dosage: FREQUENCY TEXT: WEEK 0
     Route: 058
     Dates: start: 202112
  2. SKYRIZI [Suspect]
     Active Substance: RISANKIZUMAB-RZAA
     Dosage: FREQUENCY TEXT: WEEK 4
     Route: 058
  3. SKYRIZI [Suspect]
     Active Substance: RISANKIZUMAB-RZAA
     Dosage: 150MG PFS WEEK 0, WEEK 4, THEN EVERY 12 WEEKS
     Route: 058
     Dates: start: 2022

REACTIONS (2)
  - Therapeutic response shortened [Unknown]
  - Psoriasis [Unknown]
